FAERS Safety Report 9727572 (Version 2)
Quarter: 2013Q4

REPORT INFORMATION
  Report Type: Spontaneous
  Country: FR (occurrence: FR)
  Receive Date: 20131203
  Receipt Date: 20131203
  Transmission Date: 20140711
  Serious: Yes (Hospitalization, Other)
  Sender: FDA-Public Use
  Company Number: FR-PFIZER INC-2013029098

PATIENT
  Age: 74 Year
  Sex: Female

DRUGS (16)
  1. TAZOCILLINE [Suspect]
     Indication: PNEUMONIA
     Dosage: UNK
     Route: 042
     Dates: start: 20121104, end: 20121116
  2. DALACINE [Suspect]
     Indication: ANTIBIOTIC PROPHYLAXIS
     Dosage: UNK
     Route: 048
     Dates: start: 201210, end: 201211
  3. CIPROFLOXACIN [Suspect]
     Indication: PNEUMONIA
     Dosage: 500 MG, ALTERNATE DAY
     Route: 048
     Dates: start: 20121104, end: 20121108
  4. TAHOR [Concomitant]
     Dosage: UNK
  5. APROVEL [Concomitant]
     Route: 048
  6. OMEPRAZOLE [Concomitant]
     Dosage: UNK
  7. PLAVIX [Concomitant]
     Dosage: UNK
  8. CARDENSIEL [Concomitant]
     Dosage: UNK
  9. PRIMPERAN [Concomitant]
     Dosage: UNK
  10. STILNOX [Concomitant]
     Dosage: UNK
  11. LANTUS [Concomitant]
     Dosage: UNK
  12. KARDEGIC [Concomitant]
     Dosage: UNK
  13. FORLAX [Concomitant]
     Dosage: UNK
  14. DIFFU K [Concomitant]
     Dosage: UNK
  15. LASILIX [Concomitant]
     Dosage: UNK
  16. TAVANIC [Concomitant]
     Dosage: UNK
     Dates: end: 201210

REACTIONS (3)
  - Drug-induced liver injury [Recovered/Resolved]
  - Myocardial ischaemia [Unknown]
  - Prothrombin time shortened [Unknown]
